FAERS Safety Report 6791271-5 (Version None)
Quarter: 2010Q2

REPORT INFORMATION
  Report Type: 
  Country: None (occurrence: None)
  Receive Date: 20100624
  Receipt Date: 20100616
  Transmission Date: 20101027
  Serious: Yes (Other)
  Sender: FDA-Public Use
  Company Number: US-WYE-H15738910

PATIENT
  Sex: Female
  Weight: 86.26 kg

DRUGS (7)
  1. EFFEXOR XR [Suspect]
     Indication: DEPRESSION
     Route: 048
     Dates: start: 20091101, end: 20100101
  2. EFFEXOR XR [Suspect]
     Indication: SUICIDAL IDEATION
     Route: 048
     Dates: start: 20100101, end: 20100101
  3. EFFEXOR XR [Suspect]
     Dosage: 150 MG ^RED CAPSULE^ ONCE DAILY
     Route: 048
     Dates: start: 20100101, end: 20100101
  4. EFFEXOR XR [Suspect]
     Dosage: 2 OF THE 75 MG CAPSULES
     Route: 048
     Dates: start: 20100101
  5. GEODON [Concomitant]
     Dosage: UNKNOWN
  6. LITHIUM [Concomitant]
     Indication: AFFECTIVE DISORDER
     Dosage: UNKNOWN
  7. INSULIN [Concomitant]
     Indication: DIABETES MELLITUS
     Dosage: UNKNOWN

REACTIONS (11)
  - CONDITION AGGRAVATED [None]
  - DEPRESSION [None]
  - DIZZINESS [None]
  - DRUG EFFECT DECREASED [None]
  - DRY MOUTH [None]
  - FEELING ABNORMAL [None]
  - MALAISE [None]
  - NONSPECIFIC REACTION [None]
  - PALPITATIONS [None]
  - SUICIDAL IDEATION [None]
  - TREMOR [None]
